FAERS Safety Report 9308372 (Version 1)
Quarter: 2013Q2

REPORT INFORMATION
  Report Type: Spontaneous
  Country: AU (occurrence: AU)
  Receive Date: 20130524
  Receipt Date: 20130524
  Transmission Date: 20140414
  Serious: Yes (Other)
  Sender: FDA-Public Use
  Company Number: AU-GLAXOSMITHKLINE-B0894097A

PATIENT
  Sex: Male

DRUGS (1)
  1. DUODART [Suspect]
     Indication: PRODUCT USED FOR UNKNOWN INDICATION
     Route: 065
     Dates: start: 201305

REACTIONS (3)
  - Foreign body [Unknown]
  - Wound haemorrhage [Unknown]
  - Dysphagia [Unknown]
